FAERS Safety Report 7355377-4 (Version None)
Quarter: 2011Q1

REPORT INFORMATION
  Report Type: 
  Country: None (occurrence: None)
  Receive Date: 20110316
  Receipt Date: 20110309
  Transmission Date: 20110831
  Serious: Yes (Death)
  Sender: FDA-Public Use
  Company Number: DE-ROCHE-764760

PATIENT
  Sex: Female
  Weight: 62 kg

DRUGS (2)
  1. TRASTUZUMAB [Suspect]
     Dosage: DOSE: 500
     Route: 065
     Dates: start: 20090928, end: 20100121
  2. TRIAMCINOLONE ACETONIDE [Suspect]
     Dosage: DOSE: 1000.
     Route: 065
     Dates: start: 20100601

REACTIONS (1)
  - PULMONARY EMBOLISM [None]
